FAERS Safety Report 6984025-8 (Version None)
Quarter: 2010Q3

REPORT INFORMATION
  Report Type: 
  Country: None (occurrence: None)
  Receive Date: 20100915
  Receipt Date: 20090511
  Transmission Date: 20110219
  Serious: No
  Sender: FDA-Public Use
  Company Number: US-WYE-H09265709

PATIENT
  Age: 38 Year
  Sex: Male
  Weight: 86.26 kg

DRUGS (2)
  1. ADVIL LIQUI-GELS [Suspect]
     Indication: TENDON PAIN
     Dosage: 1-2 CAPLETS EVERY 4 HOURS
     Route: 048
     Dates: start: 20090505, end: 20090505
  2. XANAX [Concomitant]

REACTIONS (3)
  - PRURITUS [None]
  - RASH [None]
  - RASH PUSTULAR [None]
